FAERS Safety Report 26154387 (Version 1)
Quarter: 2025Q4

REPORT INFORMATION
  Report Type: Spontaneous
  Country: EU (occurrence: EU)
  Receive Date: 20251215
  Receipt Date: 20251215
  Transmission Date: 20260118
  Serious: Yes (Hospitalization, Other)
  Sender: BRISTOL-MYERS SQUIBB COMPANY
  Company Number: None

PATIENT
  Age: 83 Year
  Sex: Male

DRUGS (1)
  1. ELIQUIS [Suspect]
     Active Substance: APIXABAN
     Indication: Thrombosis prophylaxis
     Dosage: 5MG 1-0-1?100 TABLETS
     Route: 048
     Dates: start: 20211209, end: 20251007

REACTIONS (2)
  - Subdural haematoma [Recovered/Resolved]
  - Craniocerebral injury [Unknown]

NARRATIVE: CASE EVENT DATE: 20251007
